FAERS Safety Report 11387756 (Version 2)
Quarter: 2017Q2

REPORT INFORMATION
  Report Type: Spontaneous
  Country: US (occurrence: US)
  Receive Date: 20150817
  Receipt Date: 20170620
  Transmission Date: 20170829
  Serious: Yes (Hospitalization, Other)
  Sender: FDA-Public Use
  Company Number: US-SA-2015SA120346

PATIENT
  Sex: Male

DRUGS (2)
  1. LANTUS [Suspect]
     Active Substance: INSULIN GLARGINE
     Indication: DIABETES MELLITUS
     Dosage: DOSE:25 UNIT(S)
     Route: 058
  2. LANTUS [Suspect]
     Active Substance: INSULIN GLARGINE
     Indication: DIABETES MELLITUS
     Dosage: DOSE:28 UNIT(S)
     Route: 051
     Dates: start: 201507

REACTIONS (7)
  - Nephrolithiasis [Unknown]
  - Asthenia [Unknown]
  - Hyperhidrosis [Unknown]
  - Renal impairment [Not Recovered/Not Resolved]
  - Impaired driving ability [Unknown]
  - Hypoglycaemia [Unknown]
  - Confusional state [Unknown]
